FAERS Safety Report 23219329 (Version 1)
Quarter: 2023Q4

REPORT INFORMATION
  Report Type: Spontaneous
  Country: AT (occurrence: AT)
  Receive Date: 20231122
  Receipt Date: 20231122
  Transmission Date: 20240110
  Serious: Yes (Other)
  Sender: FDA-Public Use
  Company Number: AT-PTA-005303

PATIENT
  Age: 14 Year
  Sex: Male

DRUGS (1)
  1. IBUPROFEN [Suspect]
     Active Substance: IBUPROFEN
     Indication: Respiratory tract infection
     Dosage: UNK
     Route: 065

REACTIONS (9)
  - Acute respiratory distress syndrome [Unknown]
  - Mouth ulceration [Unknown]
  - Rash erythematous [Unknown]
  - Photophobia [Unknown]
  - Tonsillar hypertrophy [Unknown]
  - Lip haemorrhage [Unknown]
  - Chapped lips [Unknown]
  - Pyrexia [Unknown]
  - Chills [Unknown]
